FAERS Safety Report 8505326-8 (Version None)
Quarter: 2012Q3

REPORT INFORMATION
  Report Type: 
  Country: None (occurrence: None)
  Receive Date: 20120712
  Receipt Date: 20120709
  Transmission Date: 20120928
  Serious: Yes (Other)
  Sender: FDA-Public Use
  Company Number: PL-PFIZER INC-2012163615

PATIENT
  Sex: Male

DRUGS (2)
  1. CARDURA [Suspect]
     Dosage: 4 MG, UNK
     Dates: start: 20111001
  2. SINTROM [Suspect]
     Dosage: UNK
     Dates: start: 20111001

REACTIONS (1)
  - HAEMATOSPERMIA [None]
